FAERS Safety Report 8759765 (Version 6)
Quarter: 2017Q1

REPORT INFORMATION
  Report Type: Spontaneous
  Country: US (occurrence: US)
  Receive Date: 20120829
  Receipt Date: 20170316
  Transmission Date: 20170429
  Serious: Yes (Other)
  Sender: FDA-Public Use
  Company Number: US-ASTRAZENECA-2012SE60521

PATIENT
  Age: 22523 Day
  Sex: Female

DRUGS (43)
  1. ZESTRIL [Suspect]
     Active Substance: LISINOPRIL
     Route: 048
  2. XANAX [Concomitant]
     Active Substance: ALPRAZOLAM
     Indication: ANXIETY
     Dosage: 1 DF FOUR TIMES DAILY AS NEEDED
     Route: 048
  3. DESYREL [Concomitant]
     Active Substance: TRAZODONE HYDROCHLORIDE
     Route: 048
  4. INFLUENZA VACCINE [Concomitant]
     Active Substance: INFLUENZA VIRUS VACCINE
     Dosage: ADULT TRI PFREE
     Dates: start: 20121031
  5. BYETTA [Suspect]
     Active Substance: EXENATIDE
     Dosage: 250MCG/ML 10MCG DOSE PEN 2.4 ML, TWO TIMES A DAY (10 MCG/0.04 ML) 1 HOUR BEFORE BREAKFAST AND 1 H...
     Route: 058
  6. ZESTRIL [Suspect]
     Active Substance: LISINOPRIL
     Dosage: PRINIVIL, 2.5 MG EVERY DAY
     Route: 048
  7. ASPIRIN. [Concomitant]
     Active Substance: ASPIRIN
     Route: 048
  8. LASIX [Concomitant]
     Active Substance: FUROSEMIDE
  9. INFLUENZA VACCINE [Concomitant]
     Active Substance: INFLUENZA VIRUS VACCINE
     Dosage: ADULT TRI PFREE
     Dates: start: 20131003
  10. TDAP [Concomitant]
     Dates: start: 20130924
  11. ADVAIR DISKUS [Concomitant]
     Active Substance: FLUTICASONE PROPIONATE\SALMETEROL XINAFOATE
     Dosage: 250-50 MCG/DOSE AEPB, 1 PUFF INTO THE LUNGS TWO TIMES DAILY
  12. NEXIUM [Suspect]
     Active Substance: ESOMEPRAZOLE MAGNESIUM
     Dosage: 40.0MG UNKNOWN
     Route: 048
  13. PRILOSEC [Suspect]
     Active Substance: OMEPRAZOLE MAGNESIUM
     Route: 048
  14. GLUCOTROL [Concomitant]
     Active Substance: GLIPIZIDE
     Dosage: 1 TABLET TWICE DAILY BEFORE MEALS
     Route: 048
  15. LEVOTHROID [Concomitant]
     Active Substance: LEVOTHYROXINE SODIUM
     Route: 048
  16. NITRO-DUR [Concomitant]
     Active Substance: NITROGLYCERIN
     Indication: ANGINA PECTORIS
     Dosage: 0.4 MG/HR, 1 PATCH DAILY
  17. TOPAMAX [Concomitant]
     Active Substance: TOPIRAMATE
     Route: 048
  18. FLONASE [Concomitant]
     Active Substance: FLUTICASONE PROPIONATE
     Dosage: 2 SPRAYS DAILY
     Route: 045
  19. ELAVIL [Suspect]
     Active Substance: AMITRIPTYLINE HYDROCHLORIDE
     Route: 065
  20. ZYRTEC [Concomitant]
     Active Substance: CETIRIZINE HYDROCHLORIDE
     Route: 048
  21. SYNTHROID [Concomitant]
     Active Substance: LEVOTHYROXINE SODIUM
     Dosage: ONE TABLET ONE TIME DAILY ON AN EMPTY STOMACH
     Route: 048
  22. MICRO-K [Concomitant]
     Active Substance: POTASSIUM CHLORIDE
     Dosage: 10 MEQ CR CAPSULE, 1 CAPSULE TWICE DAILY
  23. NEXIUM [Suspect]
     Active Substance: ESOMEPRAZOLE MAGNESIUM
     Dosage: UNKNOWN
     Route: 048
  24. CRESTOR [Suspect]
     Active Substance: ROSUVASTATIN CALCIUM
     Route: 048
  25. RELPAX [Concomitant]
     Active Substance: ELETRIPTAN HYDROBROMIDE
     Dosage: 40 MG AS NEEDED, MAY REPEAT IN 2 HOURS IF NECESSARY, MAXIMUM DAILY DOSE 80 MG/1 TABLET AT ONSET O...
     Route: 048
  26. EPIPEN [Concomitant]
     Active Substance: EPINEPHRINE
     Dosage: 0.3 MG/0.3 ML DEVI, 1 EACH AS DIRECTED CONTINUOUS PRN.
  27. PNEUMOVAX 23 [Concomitant]
     Active Substance: PNEUMOCOCCAL VACCINE, POLYVALENT 23
     Dates: start: 20130924
  28. ZESTRIL [Suspect]
     Active Substance: LISINOPRIL
     Route: 048
  29. VITAMIN B12 [Concomitant]
     Active Substance: CYANOCOBALAMIN
     Dosage: 1000 MCG/ML INTO THE MUSCLE EVERY 30 DAYS
     Route: 030
  30. FISH OIL [Concomitant]
     Active Substance: FISH OIL
     Route: 048
  31. PROAIR HFA [Concomitant]
     Active Substance: ALBUTEROL SULFATE
     Dosage: 108 (9. BASE) MCG/ACT INHALER, TWO PUFFS EVERY SIX HOURS AS NEEDED
  32. ESGIC PLUS [Concomitant]
     Indication: PAIN
     Dosage: 1 TABLET EVERY 4 HOURS AS NEEDED
     Route: 048
  33. ACTOS [Concomitant]
     Active Substance: PIOGLITAZONE HYDROCHLORIDE
     Route: 048
  34. COREG [Concomitant]
     Active Substance: CARVEDILOL
     Dosage: 1 TABLET TWICE DAILY WITH MEALS
  35. FLEXERIL [Concomitant]
     Active Substance: CYCLOBENZAPRINE HYDROCHLORIDE
     Indication: MUSCLE SPASMS
     Dosage: 1 TABLET TWO TIMES A DAY AS NEEDED
     Route: 048
  36. FISH OIL [Concomitant]
     Active Substance: FISH OIL
     Route: 048
  37. NITROSTAT [Concomitant]
     Active Substance: NITROGLYCERIN
     Indication: ANGINA PECTORIS
     Dosage: 0.4 MG SL TABLET, 04 MG UNDER THE TONGUE EVERY 5 MINUTES AS NEEDED
  38. PHENOBARBITAL. [Concomitant]
     Active Substance: PHENOBARBITAL
     Indication: ABDOMINAL PAIN UPPER
     Dosage: 20 MG/5 ML, 30 MLS (120 MG TOTAL) DAILY AS NEEDED
     Route: 048
  39. INFLUENZA VACCINE [Concomitant]
     Active Substance: INFLUENZA VIRUS VACCINE
     Dosage: ADULT QUAD
     Dates: start: 20141029
  40. ZOSTER [Concomitant]
     Dates: start: 20141203
  41. VITAMIN D [Concomitant]
     Active Substance: CHOLECALCIFEROL
     Route: 048
  42. SINGULAIR [Concomitant]
     Active Substance: MONTELUKAST SODIUM
     Route: 048
  43. REFRESH OP [Concomitant]
     Dosage: APPLY TO EYES AS NEEDED
     Route: 047

REACTIONS (6)
  - Lung neoplasm malignant [Unknown]
  - Bronchitis [Unknown]
  - Blood cholesterol increased [Unknown]
  - Sinusitis [Unknown]
  - Drug hypersensitivity [Unknown]
  - Headache [Unknown]

NARRATIVE: CASE EVENT DATE: 20090228
